FAERS Safety Report 18766941 (Version 2)
Quarter: 2021Q1

REPORT INFORMATION
  Report Type: Spontaneous
  Country: US (occurrence: US)
  Receive Date: 20210121
  Receipt Date: 20210126
  Transmission Date: 20210419
  Serious: No
  Sender: FDA-Public Use
  Company Number: US-HORIZON-2021HZN00452

PATIENT
  Age: 69 Year
  Sex: Female

DRUGS (10)
  1. METOPROLOL SUCCINATEMETOPROLOL SUCCINAT [Concomitant]
  2. ZINC?15 [Concomitant]
  3. LEVOTHYROXINE SODIUM LEVOTHYROXIN [Concomitant]
  4. CARMUSTINECARMUSTIN [Concomitant]
  5. VITAMIN B6 [Concomitant]
     Active Substance: PYRIDOXINE HYDROCHLORIDE
  6. LOVASTATINLOVASTATIN [Concomitant]
  7. LISINOPRIL/HYDROCHLOROTHIAZIDELISINOPRIL HYDROCHLORTHIAZIDE [Concomitant]
  8. VITAMIN B12 [Concomitant]
     Active Substance: CYANOCOBALAMIN
  9. ACTIMMUNE [Suspect]
     Active Substance: INTERFERON GAMMA-1B
     Indication: CUTANEOUS T-CELL LYMPHOMA
     Dosage: 0.5ML SUBCUTANEOUS 3 TIMES WEEKLY ; TIME INTERVAL: 0.33 WK
     Route: 058
  10. BEXAROTENEBEXAROTEN [Concomitant]

REACTIONS (3)
  - Off label use [Unknown]
  - Epistaxis [Unknown]
  - Influenza like illness [Unknown]
